FAERS Safety Report 26166322 (Version 1)
Quarter: 2025Q4

REPORT INFORMATION
  Report Type: Report from Study
  Country: CA (occurrence: CA)
  Receive Date: 20251216
  Receipt Date: 20251216
  Transmission Date: 20260118
  Serious: Yes (Other)
  Sender: JOHNSON AND JOHNSON
  Company Number: CA-JNJFOC-20250807378

PATIENT
  Age: 56 Year
  Sex: Female

DRUGS (1)
  1. SIMPONI [Suspect]
     Active Substance: GOLIMUMAB
     Indication: Product used for unknown indication
     Route: 058

REACTIONS (9)
  - Hemiparesis [Unknown]
  - Localised infection [Unknown]
  - Localised infection [Unknown]
  - Ear infection [Unknown]
  - Abnormal loss of weight [Not Recovered/Not Resolved]
  - Muscular weakness [Unknown]
  - Hypoaesthesia [Unknown]
  - Tremor [Unknown]
  - Eating disorder [Unknown]
